FAERS Safety Report 7585877-3 (Version None)
Quarter: 2011Q2

REPORT INFORMATION
  Report Type: 
  Country: None (occurrence: None)
  Receive Date: 20110624
  Receipt Date: 20110610
  Transmission Date: 20111010
  Serious: Yes (Hospitalization)
  Sender: FDA-Public Use
  Company Number: 2011AM04677

PATIENT
  Age: 65 Year
  Sex: Female
  Weight: 87.9978 kg

DRUGS (4)
  1. METFORMIN HCL [Concomitant]
  2. SYMLIN [Suspect]
     Indication: TYPE 2 DIABETES MELLITUS
     Dosage: 120 MGC;TID;SC, 60 MCG;TID;SC, 45 MCG;TID;SC, 30 MCG;TID;SC
     Route: 058
     Dates: end: 20110601
  3. LANTUS [Concomitant]
  4. SYMLIN [Suspect]
     Indication: TYPE 2 DIABETES MELLITUS
     Dosage: SC
     Route: 058
     Dates: start: 20110601

REACTIONS (3)
  - KNEE ARTHROPLASTY [None]
  - ARTHRALGIA [None]
  - WRONG TECHNIQUE IN DRUG USAGE PROCESS [None]
